FAERS Safety Report 6313158-4 (Version None)
Quarter: 2009Q3

REPORT INFORMATION
  Report Type: 
  Country: None (occurrence: None)
  Receive Date: 20090818
  Receipt Date: 20090814
  Transmission Date: 20100115
  Serious: Yes (Death, Life-Threatening, Hospitalization)
  Sender: FDA-Public Use
  Company Number: BR-ASTRAZENECA-2009SE08182

PATIENT
  Age: 24 Year
  Sex: Male

DRUGS (11)
  1. MEROPENEM [Suspect]
     Route: 042
  2. OLSETAMIVIR [Suspect]
  3. IMIPENEM [Suspect]
  4. KLARICID [Suspect]
  5. TAZOCIN [Suspect]
  6. ROCEPHIN [Suspect]
  7. CORTICOIDE [Suspect]
  8. IMMUNGLOBULIN [Suspect]
  9. VANCOMICIN [Concomitant]
  10. FLUCONAZOLE [Concomitant]
  11. LEVAQUIN [Concomitant]

REACTIONS (1)
  - DRUG INEFFECTIVE [None]
